FAERS Safety Report 9147032 (Version 1)
Quarter: 2013Q1

REPORT INFORMATION
  Report Type: Spontaneous
  Country: CO (occurrence: None)
  Receive Date: 20130222
  Receipt Date: 20130222
  Transmission Date: 20140127
  Serious: Yes (Death)
  Sender: FDA-Public Use
  Company Number: 2013-0815

PATIENT
  Age: 51 Year
  Sex: Male

DRUGS (1)
  1. LANREOTIDE [Suspect]
     Indication: ACROMEGALY
     Dosage: 120 MG (120 MG, 1 IN 28 D), SUBCUTANEOUS
     Dates: start: 20100209, end: 20130123

REACTIONS (1)
  - Pleural effusion [None]
